FAERS Safety Report 25406090 (Version 1)
Quarter: 2025Q2

REPORT INFORMATION
  Report Type: Report from Study
  Country: US (occurrence: US)
  Receive Date: 20250606
  Receipt Date: 20250606
  Transmission Date: 20250717
  Serious: Yes (Death, Life-Threatening)
  Sender: ALEXION PHARMACEUTICALS
  Company Number: US-AstraZeneca-CH-00885332A

PATIENT

DRUGS (1)
  1. OSIMERTINIB [Suspect]
     Active Substance: OSIMERTINIB
     Route: 065

REACTIONS (2)
  - Death [Fatal]
  - Pneumonitis [Unknown]
